FAERS Safety Report 7232406-X (Version None)
Quarter: 2011Q1

REPORT INFORMATION
  Report Type: 
  Country: None (occurrence: None)
  Receive Date: 20110105
  Receipt Date: 20101222
  Transmission Date: 20110831
  Serious: Yes (Hospitalization, Other)
  Sender: FDA-Public Use
  Company Number: 2010AC000387

PATIENT
  Age: 90 Year
  Sex: Female

DRUGS (8)
  1. BLOOD TRANSFUSION [Concomitant]
  2. DIGOXIN [Suspect]
     Dosage: 0.125 MG; PO
     Route: 048
     Dates: start: 20061116, end: 20081101
  3. SENOKOT [Concomitant]
  4. VITAMIN B-12 [Concomitant]
  5. ALDACTONE [Concomitant]
  6. OXYGEN [Concomitant]
  7. FERROUS SULFATE TAB [Concomitant]
  8. DIGOXIN [Suspect]
     Dosage: PO
     Route: 048
     Dates: start: 20060301, end: 20080601

REACTIONS (6)
  - PAIN [None]
  - ANXIETY [None]
  - CARDIAC DISORDER [None]
  - ECONOMIC PROBLEM [None]
  - WHEELCHAIR USER [None]
  - CARDIAC FAILURE CONGESTIVE [None]
